FAERS Safety Report 7343697-9 (Version None)
Quarter: 2011Q1

REPORT INFORMATION
  Report Type: 
  Country: None (occurrence: None)
  Receive Date: 20110308
  Receipt Date: 20110308
  Transmission Date: 20110831
  Serious: Yes (Hospitalization, Other)
  Sender: FDA-Public Use
  Company Number: None

PATIENT
  Age: 42 Year
  Sex: Female
  Weight: 61.2356 kg

DRUGS (2)
  1. CELCEPTS, MYCOPHENOLATE [Suspect]
  2. PAIN MEDS [Concomitant]

REACTIONS (12)
  - INFLUENZA [None]
  - ARTHRALGIA [None]
  - JOINT SWELLING [None]
  - LIVER DISORDER [None]
  - PALLOR [None]
  - VISUAL IMPAIRMENT [None]
  - NO THERAPEUTIC RESPONSE [None]
  - RENAL IMPAIRMENT [None]
  - MENTAL IMPAIRMENT [None]
  - PHARYNGEAL DISORDER [None]
  - MOUTH HAEMORRHAGE [None]
  - PERIPHERAL COLDNESS [None]
